FAERS Safety Report 5179021-X (Version None)
Quarter: 2006Q4

REPORT INFORMATION
  Report Type: 
  Country: None (occurrence: None)
  Receive Date: 20061208
  Receipt Date: 20061122
  Transmission Date: 20070319
  Serious: Yes (Hospitalization)
  Sender: FDA-Public Use
  Company Number: 150161ISR

PATIENT
  Age: 40 Year
  Sex: Female

DRUGS (2)
  1. MINOCYCLINE HCL [Suspect]
     Indication: ACNE
     Dosage: 100 MG (1 IN 1 D)
  2. CONTRACEPTIVES NOS [Concomitant]

REACTIONS (1)
  - POLYARTERITIS NODOSA [None]
